FAERS Safety Report 7728499-3 (Version None)
Quarter: 2011Q3

REPORT INFORMATION
  Report Type: 
  Country: None (occurrence: None)
  Receive Date: 20110905
  Receipt Date: 20110824
  Transmission Date: 20111222
  Serious: Yes (Hospitalization)
  Sender: FDA-Public Use
  Company Number: JP-SANOFI-AVENTIS-2011SA056871

PATIENT
  Age: 75 Year
  Sex: Male

DRUGS (3)
  1. WARFARIN SODIUM [Concomitant]
  2. GLIMEPIRIDE [Suspect]
     Route: 048
  3. METFORMIN HCL [Suspect]
     Route: 048

REACTIONS (5)
  - HYPOGLYCAEMIC ENCEPHALOPATHY [None]
  - HEMIPLEGIA [None]
  - MIOSIS [None]
  - FALL [None]
  - ALTERED STATE OF CONSCIOUSNESS [None]
